FAERS Safety Report 26213001 (Version 1)
Quarter: 2025Q4

REPORT INFORMATION
  Report Type: Report from Study
  Country: TH (occurrence: TH)
  Receive Date: 20251230
  Receipt Date: 20251230
  Transmission Date: 20260117
  Serious: Yes (Other)
  Sender: HELSINN HEALTHCARE
  Company Number: TH-HBP-2025TH032469

PATIENT

DRUGS (1)
  1. AKYNZEO (FOSNETUPITANT\PALONOSETRON HYDROCHLORIDE) [Suspect]
     Active Substance: FOSNETUPITANT\PALONOSETRON HYDROCHLORIDE
     Indication: Prophylaxis of nausea and vomiting
     Dosage: UNK, UNKNOWN
     Route: 048
     Dates: start: 20250605, end: 20250620

REACTIONS (2)
  - Immune thrombocytopenia [Unknown]
  - Platelet count decreased [Unknown]

NARRATIVE: CASE EVENT DATE: 20250620
